FAERS Safety Report 7773575-2 (Version None)
Quarter: 2011Q3

REPORT INFORMATION
  Report Type: 
  Country: None (occurrence: None)
  Receive Date: 20110923
  Receipt Date: 20110914
  Transmission Date: 20111222
  Serious: Yes (Hospitalization)
  Sender: FDA-Public Use
  Company Number: ES-BIOGENIDEC-2011BI008993

PATIENT
  Age: 32 Year
  Sex: Female

DRUGS (6)
  1. NOLOTIL [Concomitant]
  2. LANSOPRAZOLE [Concomitant]
  3. ENANTYUM [Concomitant]
  4. TYSABRI [Suspect]
     Indication: MULTIPLE SCLEROSIS
     Route: 042
     Dates: start: 20080212
  5. ENOXAPARIN SODIUM [Concomitant]
     Route: 058
  6. CHONDROSULF [Concomitant]

REACTIONS (1)
  - CARTILAGE INJURY [None]
